FAERS Safety Report 8487406-9 (Version None)
Quarter: 2012Q2

REPORT INFORMATION
  Report Type: 
  Country: None (occurrence: None)
  Receive Date: 20120628
  Receipt Date: 20120628
  Transmission Date: 20120825
  Serious: Yes (Other)
  Sender: FDA-Public Use
  Company Number: None

PATIENT
  Age: 11 Year
  Sex: Male
  Weight: 51.2565 kg

DRUGS (2)
  1. LEXAPRO [Concomitant]
  2. ZYPREXA [Suspect]
     Indication: AUTISM SPECTRUM DISORDER
     Dosage: 10MG PO BID
     Route: 048
     Dates: start: 20050101

REACTIONS (5)
  - AGGRESSION [None]
  - ANGER [None]
  - PRODUCT SUBSTITUTION ISSUE [None]
  - EATING DISORDER [None]
  - HEAD BANGING [None]
